FAERS Safety Report 7629234-X (Version None)
Quarter: 2011Q3

REPORT INFORMATION
  Report Type: 
  Country: None (occurrence: None)
  Receive Date: 20110722
  Receipt Date: 20110720
  Transmission Date: 20111222
  Serious: Yes (Death, Other)
  Sender: FDA-Public Use
  Company Number: PHHY2011JP65335

PATIENT
  Age: 16 Year
  Sex: Male

DRUGS (1)
  1. CYCLOSPORINE [Suspect]

REACTIONS (4)
  - LUNG INFECTION [None]
  - SERUM FERRITIN INCREASED [None]
  - GRAFT VERSUS HOST DISEASE [None]
  - FUNGAL INFECTION [None]
